FAERS Safety Report 9296096 (Version 3)
Quarter: 2013Q2

REPORT INFORMATION
  Report Type: Report from Study
  Country: DE (occurrence: DE)
  Receive Date: 20130517
  Receipt Date: 20130619
  Transmission Date: 20140414
  Serious: Yes (Other)
  Sender: FDA-Public Use
  Company Number: DE-BAYER-2013-061722

PATIENT
  Age: 54 Year
  Sex: Male

DRUGS (2)
  1. BETAFERON [Suspect]
     Indication: MULTIPLE SCLEROSIS
     Dosage: UNK UNK, QOD
     Route: 058
     Dates: start: 201006, end: 201305
  2. INSULIN [Concomitant]

REACTIONS (2)
  - Skin necrosis [Not Recovered/Not Resolved]
  - Weight decreased [None]
